FAERS Safety Report 7707044-2 (Version None)
Quarter: 2011Q3

REPORT INFORMATION
  Report Type: 
  Country: None (occurrence: None)
  Receive Date: 20110824
  Receipt Date: 20110818
  Transmission Date: 20111222
  Serious: Yes (Other)
  Sender: FDA-Public Use
  Company Number: AU-ABBOTT-09P-008-0571837-00

PATIENT
  Sex: Female

DRUGS (8)
  1. PREDNISOLONE [Concomitant]
     Indication: PSORIASIS
     Dates: start: 20080701
  2. METHOTREXATE [Concomitant]
     Indication: PSORIASIS
     Dosage: 10-20 MG WEEKLY
     Dates: start: 20040701, end: 20060601
  3. ADALIMUMAB [Suspect]
     Route: 058
     Dates: end: 20090501
  4. ADALIMUMAB [Suspect]
     Indication: PSORIASIS
     Dosage: LOADING DOSE
     Route: 058
     Dates: start: 20081001
  5. EFALIZUMAB [Concomitant]
     Indication: PSORIASIS
     Route: 058
     Dates: start: 20071201, end: 20080701
  6. METHOTREXATE [Concomitant]
     Dates: start: 20070301, end: 20070901
  7. METHOTREXATE [Concomitant]
     Dates: start: 20080701
  8. PREDNISOLONE [Concomitant]

REACTIONS (8)
  - ARTHRITIS [None]
  - PSORIASIS [None]
  - HILAR LYMPHADENOPATHY [None]
  - COMPUTERISED TOMOGRAM ABNORMAL [None]
  - ANGIOTENSIN CONVERTING ENZYME INCREASED [None]
  - SARCOIDOSIS [None]
  - LYMPHADENOPATHY MEDIASTINAL [None]
  - CUTANEOUS SARCOIDOSIS [None]
